FAERS Safety Report 4536780-4 (Version None)
Quarter: 2004Q4

REPORT INFORMATION
  Report Type: 
  Country: None (occurrence: None)
  Receive Date: 20041223
  Receipt Date: 20041215
  Transmission Date: 20050328
  Serious: Yes (Hospitalization)
  Sender: FDA-Public Use
  Company Number: CH-ROCHE-389330

PATIENT
  Age: 52 Year
  Sex: Male

DRUGS (10)
  1. MYCOPHENOLATE MOFETIL [Suspect]
     Indication: LIVER TRANSPLANT
     Route: 048
     Dates: start: 19990615, end: 19990615
  2. TACROLIMUS [Suspect]
     Indication: LIVER TRANSPLANT
     Route: 048
     Dates: start: 19990515
  3. TACROLIMUS [Suspect]
     Route: 048
     Dates: end: 19990915
  4. PREDNISONE [Concomitant]
     Indication: LIVER TRANSPLANT
     Dosage: LONG TERM USE.
     Route: 048
  5. INSULIN [Concomitant]
     Dosage: LONG TERM USE.
     Route: 058
  6. ENALAPRIL [Concomitant]
     Dosage: SHORT TERM USE.
     Route: 048
     Dates: start: 19990515, end: 19990915
  7. OMEPRAZOLE [Concomitant]
     Dosage: LONG TERM USE.
     Route: 048
  8. ALPRAZOLAM [Concomitant]
     Dosage: LONG TERM USE.
     Route: 048
  9. CITALOPRAM [Concomitant]
     Dosage: LONG TERM USE.
     Route: 048
  10. LAMIVUDINE [Concomitant]
     Dosage: SHORT TERM USE.
     Route: 048
     Dates: start: 19990515, end: 19990915

REACTIONS (3)
  - NEUTROPHIL PELGER-HUET ANOMALY PRESENT [None]
  - SHIFT TO THE LEFT [None]
  - WHITE BLOOD CELL DISORDER [None]
